FAERS Safety Report 8758934 (Version 2)
Quarter: 2012Q4

REPORT INFORMATION
  Report Type: 
  Country: US (occurrence: US)
  Receive Date: 20120829
  Receipt Date: 20120911
  Transmission Date: 20130627
  Serious: Yes (Other)
  Sender: FDA-Public Use
  Company Number: US-JNJFOC-20120810690

PATIENT
  Age: 48 Year
  Sex: Male

DRUGS (2)
  1. STELARA [Suspect]
     Indication: PRODUCT USED FOR UNKNOWN INDICATION
     Route: 058
  2. CONCERTA [Concomitant]
     Indication: ATTENTION DEFICIT/HYPERACTIVITY DISORDER
     Route: 065

REACTIONS (1)
  - Bronchitis [Recovered/Resolved]
